FAERS Safety Report 6705362-8 (Version None)
Quarter: 2010Q2

REPORT INFORMATION
  Report Type: 
  Country: None (occurrence: None)
  Receive Date: 20100503
  Receipt Date: 20100423
  Transmission Date: 20101027
  Serious: Yes (Other)
  Sender: FDA-Public Use
  Company Number: US-RB-007355-10

PATIENT
  Age: 65 Year
  Sex: Female

DRUGS (1)
  1. SUBOXONE [Suspect]
     Route: 060
     Dates: start: 20100101

REACTIONS (3)
  - LOSS OF CONSCIOUSNESS [None]
  - PSYCHOMOTOR HYPERACTIVITY [None]
  - SUICIDAL IDEATION [None]
